FAERS Safety Report 4661743-8 (Version None)
Quarter: 2005Q2

REPORT INFORMATION
  Report Type: 
  Country: None (occurrence: None)
  Receive Date: 20050513
  Receipt Date: 20050323
  Transmission Date: 20051028
  Serious: No
  Sender: FDA-Public Use
  Company Number: PHNU2005DE01444

PATIENT
  Sex: Male

DRUGS (5)
  1. DIOVAN [Suspect]
     Dosage: 240 MG/D (160-0-80)
     Route: 048
  2. DIOVAN [Suspect]
     Dosage: 80 MG, TID
     Route: 048
  3. CLOPIDOGREL BISULFATE [Concomitant]
  4. CONCOR [Concomitant]
  5. ACETYL SALICYLIC ACID USP BAT [Concomitant]

REACTIONS (3)
  - CHEST DISCOMFORT [None]
  - CHEST PAIN [None]
  - TACHYCARDIA [None]
